FAERS Safety Report 5363186-0 (Version None)
Quarter: 2007Q2

REPORT INFORMATION
  Report Type: 
  Country: None (occurrence: None)
  Receive Date: 20070620
  Receipt Date: 20070614
  Transmission Date: 20071010
  Serious: Yes (Other)
  Sender: FDA-Public Use
  Company Number: PHNU2007DE02113

PATIENT
  Sex: Female

DRUGS (1)
  1. EXELON [Suspect]
     Dosage: 3 MG, BID
     Route: 048

REACTIONS (3)
  - BLINDNESS UNILATERAL [None]
  - DRUG DOSE OMISSION [None]
  - FALL [None]
